FAERS Safety Report 5120898-1 (Version None)
Quarter: 2006Q4

REPORT INFORMATION
  Report Type: 
  Country: None (occurrence: None)
  Receive Date: 20061005
  Receipt Date: 20050428
  Transmission Date: 20070319
  Serious: Yes (Death)
  Sender: FDA-Public Use
  Company Number: GB-ABBOTT-05P-167-0298787-00

PATIENT
  Sex: Male

DRUGS (3)
  1. RITONAVIR SOFT GELATIN CAPSULES (COMPARATOR) [Suspect]
     Indication: HIV INFECTION
     Dates: start: 20031008, end: 20050418
  2. DIDANOSINE [Concomitant]
     Indication: ANTIVIRAL PROPHYLAXIS
  3. TENOFOVIR [Concomitant]
     Indication: ANTIVIRAL PROPHYLAXIS

REACTIONS (1)
  - DEATH [None]
